FAERS Safety Report 21091865 (Version 1)
Quarter: 2022Q3

REPORT INFORMATION
  Report Type: Report from Study
  Country: US (occurrence: US)
  Receive Date: 20220717
  Receipt Date: 20220717
  Transmission Date: 20221027
  Serious: Yes (Other)
  Sender: FDA-Public Use
  Company Number: US-ABBVIE-22K-163-4468126-00

PATIENT
  Sex: Male

DRUGS (5)
  1. IMBRUVICA [Interacting]
     Active Substance: IBRUTINIB
     Indication: Chronic lymphocytic leukaemia
     Route: 048
     Dates: start: 20211207, end: 2022
  2. IMBRUVICA [Interacting]
     Active Substance: IBRUTINIB
     Route: 048
     Dates: start: 2022
  3. ITRACONAZOLE [Interacting]
     Active Substance: ITRACONAZOLE
     Indication: Product used for unknown indication
     Route: 065
  4. EVUSHELD [Concomitant]
     Active Substance: CILGAVIMAB\TIXAGEVIMAB
     Indication: COVID-19 immunisation
     Dosage: COVID-19 VACCINE
     Route: 030
     Dates: start: 202202, end: 202202
  5. EVUSHELD [Concomitant]
     Active Substance: CILGAVIMAB\TIXAGEVIMAB
     Dosage: COVID-19 VACCINE
     Route: 030
     Dates: start: 202203, end: 202203

REACTIONS (3)
  - Pulmonary histoplasmosis [Unknown]
  - Low density lipoprotein abnormal [Unknown]
  - Fatigue [Unknown]
